FAERS Safety Report 20532447 (Version 1)
Quarter: 2022Q1

REPORT INFORMATION
  Report Type: Spontaneous
  Country: US (occurrence: None)
  Receive Date: 20220228
  Receipt Date: 20220228
  Transmission Date: 20220424
  Serious: Yes (Other)
  Sender: FDA-Public Use
  Company Number: None

PATIENT
  Age: 63 Year
  Sex: Male

DRUGS (2)
  1. REPATHA [Suspect]
     Active Substance: EVOLOCUMAB
     Dates: start: 20200506, end: 20210801
  2. PRALUENT [Suspect]
     Active Substance: ALIROCUMAB
     Dates: start: 20210818, end: 20211126

REACTIONS (6)
  - Pigmentation disorder [None]
  - Pruritus [None]
  - Muscle spasms [None]
  - Rash [None]
  - Dermatitis contact [None]
  - Acarodermatitis [None]
